FAERS Safety Report 9485008 (Version 1)
Quarter: 2013Q3

REPORT INFORMATION
  Report Type: Spontaneous
  Country: US (occurrence: US)
  Receive Date: 20130828
  Receipt Date: 20130828
  Transmission Date: 20140515
  Serious: No
  Sender: FDA-Public Use
  Company Number: US-ABBOTT-13P-163-1128020-00

PATIENT
  Age: 66 Year
  Sex: Male
  Weight: 81.72 kg

DRUGS (10)
  1. ANDROGEL 1.62% [Suspect]
     Indication: BLOOD TESTOSTERONE DECREASED
     Dosage: TWO PUMPS DAILY
     Route: 061
     Dates: start: 2012, end: 201301
  2. ANDROGEL 1.62% [Suspect]
     Dosage: FOUR PUMPS DAILY
     Route: 061
     Dates: start: 201301, end: 201307
  3. ANDROGEL 1.62% [Suspect]
     Dosage: THREE PUMPS DAILY
     Route: 061
     Dates: start: 201307
  4. WELLBUTRIN [Concomitant]
     Indication: PRODUCT USED FOR UNKNOWN INDICATION
  5. CYMBALTA [Concomitant]
     Indication: PRODUCT USED FOR UNKNOWN INDICATION
  6. LEXAPRO [Concomitant]
     Indication: PRODUCT USED FOR UNKNOWN INDICATION
  7. ATENOLOL [Concomitant]
     Indication: PRODUCT USED FOR UNKNOWN INDICATION
  8. AMLODIPINE [Concomitant]
     Indication: PRODUCT USED FOR UNKNOWN INDICATION
  9. CRESTOR [Concomitant]
     Indication: PRODUCT USED FOR UNKNOWN INDICATION
  10. RESTASIS [Concomitant]
     Indication: PRODUCT USED FOR UNKNOWN INDICATION

REACTIONS (1)
  - Hair texture abnormal [Not Recovered/Not Resolved]
